FAERS Safety Report 13462761 (Version 2)
Quarter: 2017Q2

REPORT INFORMATION
  Report Type: Spontaneous
  Country: US (occurrence: US)
  Receive Date: 20170420
  Receipt Date: 20170530
  Transmission Date: 20170830
  Serious: No
  Sender: FDA-Public Use
  Company Number: US-PFIZER INC-2017165374

PATIENT
  Age: 9 Year
  Sex: Female

DRUGS (4)
  1. DESONIDE. [Concomitant]
     Active Substance: DESONIDE
     Indication: ECZEMA
     Dosage: UNK UNK, 2X/DAY [X 2 WKS]
     Dates: start: 20170415
  2. EUCRISA [Suspect]
     Active Substance: CRISABOROLE
     Indication: ECZEMA
     Dosage: UNK, 2X/DAY (FOR 30 DAYS)
     Route: 061
     Dates: start: 20170330, end: 20170403
  3. LORATADINE. [Concomitant]
     Active Substance: LORATADINE
     Indication: HYPERSENSITIVITY
     Dosage: UNK UNK, DAILY
     Dates: start: 20170330
  4. FLUTICASONE. [Concomitant]
     Active Substance: FLUTICASONE
     Indication: ECZEMA
     Dosage: UNK UNK, 2X/DAY (2 WKS)

REACTIONS (2)
  - Burning sensation [Recovered/Resolved]
  - Pain [Recovered/Resolved]

NARRATIVE: CASE EVENT DATE: 20170330
